FAERS Safety Report 5024242-X (Version None)
Quarter: 2006Q2

REPORT INFORMATION
  Report Type: 
  Country: None (occurrence: None)
  Receive Date: 20060426
  Receipt Date: 20060124
  Transmission Date: 20061013
  Serious: Yes (Other)
  Sender: FDA-Public Use
  Company Number: 2005138217

PATIENT
  Age: 87 Year
  Sex: Female
  Weight: 59.8748 kg

DRUGS (6)
  1. LYRICA [Suspect]
     Indication: PAIN IN EXTREMITY
     Dosage: (3 IN 1 D), ORAL
     Route: 048
     Dates: start: 20050929
  2. NORVASC [Concomitant]
  3. LIPITOR [Concomitant]
  4. METAMUCIL ^SEARLE^ (PSYLLIUM HYDROPHILIC MUCILLOID) [Concomitant]
  5. LEVOXYL [Concomitant]
  6. ATENOLOL [Concomitant]

REACTIONS (3)
  - CONSTIPATION [None]
  - FATIGUE [None]
  - SOMNOLENCE [None]
